FAERS Safety Report 19990958 (Version 1)
Quarter: 2021Q4

REPORT INFORMATION
  Report Type: Spontaneous
  Country: US (occurrence: US)
  Receive Date: 20211025
  Receipt Date: 20211025
  Transmission Date: 20220304
  Serious: Yes (Disabling)
  Sender: FDA-Public Use
  Company Number: None

PATIENT
  Age: 71 Year
  Sex: Female
  Weight: 67.5 kg

DRUGS (1)
  1. RECLAST [Suspect]
     Active Substance: ZOLEDRONIC ACID
     Indication: Osteoporosis
     Route: 042

REACTIONS (6)
  - Diarrhoea [None]
  - Weight decreased [None]
  - Fatigue [None]
  - Decreased appetite [None]
  - Pain [None]
  - Grip strength decreased [None]

NARRATIVE: CASE EVENT DATE: 20210603
